FAERS Safety Report 7906954-0 (Version None)
Quarter: 2011Q4

REPORT INFORMATION
  Report Type: 
  Country: None (occurrence: None)
  Receive Date: 20111110
  Receipt Date: 20110915
  Transmission Date: 20120403
  Serious: No
  Sender: FDA-Public Use
  Company Number: US-COVIDIEN/TYCO HEALTHCARE/MALLINCKRODT-T201101850

PATIENT
  Age: 58 Year
  Sex: Female

DRUGS (6)
  1. BYSTOLIC [Concomitant]
     Dosage: 10 MG, QD
  2. CARDIZEM CD [Concomitant]
     Dosage: 240 MG, QD
  3. PENNSAID [Suspect]
     Indication: MUSCLE TIGHTNESS
     Dosage: 10-25 GTTS EACH SIDE OF CHEST, BID
     Route: 061
     Dates: start: 20110701, end: 20110901
  4. PREDNISONE TAB [Concomitant]
     Dosage: 10 MG, QD
  5. MOTRIN [Concomitant]
     Dosage: 600 MG, BID
  6. XANAX [Concomitant]
     Dosage: 0.5 MG, TID

REACTIONS (3)
  - SWELLING [None]
  - INCORRECT DRUG ADMINISTRATION DURATION [None]
  - INTENTIONAL DRUG MISUSE [None]
